FAERS Safety Report 6752264-7 (Version None)
Quarter: 2010Q2

REPORT INFORMATION
  Report Type: 
  Country: None (occurrence: None)
  Receive Date: 20100602
  Receipt Date: 20100527
  Transmission Date: 20101027
  Serious: Yes (Other)
  Sender: FDA-Public Use
  Company Number: JP-JNJFOC-20100510464

PATIENT
  Age: 5 Decade
  Sex: Male

DRUGS (2)
  1. DUROTEP MT PATCH [Suspect]
     Indication: COMPLEX REGIONAL PAIN SYNDROME
     Route: 062
  2. DUROTEP MT PATCH [Suspect]
     Route: 062

REACTIONS (2)
  - LOSS OF CONSCIOUSNESS [None]
  - VISUAL IMPAIRMENT [None]
